FAERS Safety Report 10252421 (Version 1)
Quarter: 2014Q2

REPORT INFORMATION
  Report Type: Spontaneous
  Country: US (occurrence: None)
  Receive Date: 20140619
  Receipt Date: 20140619
  Transmission Date: 20141212
  Serious: Yes (Other)
  Sender: FDA-Public Use
  Company Number: 2014US0251

PATIENT
  Age: 03 Year
  Sex: 0

DRUGS (3)
  1. KINERET (ANAKINRA), NOT AVAILABLE [Suspect]
     Indication: JUVENILE IDIOPATHIC ARTHRITIS
  2. PREDNISONE (PREDNISONE) (PREDNISONE) [Concomitant]
  3. CYCLOSPORIN (CICLOSPORIN) (CICLOSPORIN) [Concomitant]

REACTIONS (1)
  - Acute lymphocytic leukaemia [None]
